FAERS Safety Report 4643430-5 (Version None)
Quarter: 2005Q2

REPORT INFORMATION
  Report Type: 
  Country: None (occurrence: None)
  Receive Date: 20050420
  Receipt Date: 20050420
  Transmission Date: 20051028
  Serious: Yes (Other)
  Sender: FDA-Public Use
  Company Number: None

PATIENT
  Sex: Female
  Weight: 47.6277 kg

DRUGS (1)
  1. NUVARING [Suspect]
     Indication: CONTRACEPTION
     Dosage: 1 RING WEEKLY VAGINAL
     Route: 067
     Dates: start: 20020409, end: 20020710

REACTIONS (5)
  - DYSPAREUNIA [None]
  - PREGNANCY WITH CONTRACEPTIVE DEVICE [None]
  - SCAR [None]
  - VAGINAL DISORDER [None]
  - VAGINAL PAIN [None]
